FAERS Safety Report 18623099 (Version 1)
Quarter: 2020Q4

REPORT INFORMATION
  Report Type: Spontaneous
  Country: US (occurrence: US)
  Receive Date: 20201216
  Receipt Date: 20201216
  Transmission Date: 20210114
  Serious: Yes (Death)
  Sender: FDA-Public Use
  Company Number: None

PATIENT
  Age: 64 Year
  Sex: Female
  Weight: 38 kg

DRUGS (5)
  1. XARELTO [Concomitant]
     Active Substance: RIVAROXABAN
     Dates: start: 20200929, end: 20201208
  2. ONDANSETRON 8MG [Concomitant]
     Active Substance: ONDANSETRON
     Dates: start: 20200430, end: 20201208
  3. HYCAMTIN [Suspect]
     Active Substance: TOPOTECAN HYDROCHLORIDE
     Indication: SMALL CELL LUNG CANCER
     Dosage: ?          OTHER FREQUENCY:3MG D FOR 5 DAYS;?
     Route: 048
     Dates: start: 20201123, end: 20201128
  4. OXYCODONE 5MG [Concomitant]
     Active Substance: OXYCODONE
     Dates: start: 20201128, end: 20201208
  5. MEGESTEROL 40MG [Concomitant]
     Dates: start: 20201117, end: 20201208

REACTIONS (1)
  - Disease progression [None]

NARRATIVE: CASE EVENT DATE: 20201208
